FAERS Safety Report 4922054-6 (Version None)
Quarter: 2006Q1

REPORT INFORMATION
  Report Type: 
  Country: None (occurrence: None)
  Receive Date: 20060224
  Receipt Date: 20060213
  Transmission Date: 20060701
  Serious: Yes (Other)
  Sender: FDA-Public Use
  Company Number: 2006AC00301

PATIENT
  Age: 74 Year
  Sex: Female

DRUGS (7)
  1. LIGNOCAINE [Suspect]
     Indication: LOCAL ANAESTHESIA
     Dosage: INJECTED INTO SUB-TENON'S SPACE.
     Route: 031
  2. BUPIVACAINE [Suspect]
     Indication: LOCAL ANAESTHESIA
     Dosage: INJECTED INTO SUB-TENON'S SPACE.
     Route: 031
  3. HYALURONIDASE [Suspect]
     Dosage: INJECTED INTO SUB-TENON'S SPACE.
     Route: 031
  4. PROXYMETACAINE [Suspect]
     Indication: LOCAL ANAESTHESIA
     Route: 031
  5. POVIDONE IODINE [Suspect]
     Indication: PROPHYLAXIS
     Dosage: INSTILLED INTO CONJUNCTIVAL SAC.
  6. CHLORAMPHENICOL [Suspect]
     Route: 031
  7. PREDNISOLONE [Suspect]
     Route: 031

REACTIONS (13)
  - CONJUNCTIVAL OEDEMA [None]
  - EXOPHTHALMOS [None]
  - EYE INFLAMMATION [None]
  - EYE MOVEMENT DISORDER [None]
  - EYE OEDEMA [None]
  - IATROGENIC INJURY [None]
  - MUSCLE SWELLING [None]
  - OCULAR DISCOMFORT [None]
  - OPTIC NERVE DISORDER [None]
  - POST PROCEDURAL COMPLICATION [None]
  - SOFT TISSUE INJURY [None]
  - VIRAL INFECTION [None]
  - VISUAL ACUITY REDUCED [None]
